FAERS Safety Report 7093966-5 (Version None)
Quarter: 2010Q4

REPORT INFORMATION
  Report Type: 
  Country: None (occurrence: None)
  Receive Date: 20101102
  Receipt Date: 20101025
  Transmission Date: 20110411
  Serious: Yes (Hospitalization)
  Sender: FDA-Public Use
  Company Number: 107726

PATIENT
  Age: 66 Year
  Sex: Male
  Weight: 74 kg

DRUGS (2)
  1. BLEOMYCIN FOR INJ. USP 30 UNITS - BEDFORD LABS, INC. [Suspect]
     Indication: ADENOCARCINOMA
     Dosage: 30 UNITS
     Dates: start: 20100817, end: 20100830
  2. BLEOMYCIN FOR INJ. USP 30 UNITS - BEDFORD LABS, INC. [Suspect]
     Indication: METASTASIS
     Dosage: 30 UNITS
     Dates: start: 20100817, end: 20100830

REACTIONS (5)
  - FATIGUE [None]
  - HYPONATRAEMIA [None]
  - NAUSEA [None]
  - NEUTROPENIA [None]
  - WHITE BLOOD CELL COUNT DECREASED [None]
